FAERS Safety Report 7889557-6 (Version None)
Quarter: 2011Q4

REPORT INFORMATION
  Report Type: 
  Country: None (occurrence: None)
  Receive Date: 20111103
  Receipt Date: 20110304
  Transmission Date: 20120403
  Serious: Yes (Hospitalization, Other)
  Sender: FDA-Public Use
  Company Number: US-BRISTOL-MYERS SQUIBB COMPANY-15522295

PATIENT
  Age: 33 Year
  Sex: Female

DRUGS (3)
  1. KENALOG-40 [Suspect]
     Indication: WHEEZING
     Route: 030
     Dates: start: 20110201
  2. KENALOG-40 [Suspect]
     Indication: ASTHMA
     Route: 030
     Dates: start: 20110201
  3. KENALOG-40 [Suspect]
     Indication: CHEST DISCOMFORT
     Route: 030
     Dates: start: 20110201

REACTIONS (1)
  - ANAPHYLACTIC REACTION [None]
